FAERS Safety Report 7893754-3 (Version None)
Quarter: 2011Q4

REPORT INFORMATION
  Report Type: 
  Country: None (occurrence: None)
  Receive Date: 20111104
  Receipt Date: 20111102
  Transmission Date: 20120403
  Serious: Yes (Life-Threatening, Hospitalization)
  Sender: FDA-Public Use
  Company Number: PHHY2011GB96682

PATIENT
  Age: 52 Year
  Sex: Female
  Weight: 62 kg

DRUGS (2)
  1. COLOFAC [Concomitant]
  2. FLUCONAZOLE [Suspect]
     Dosage: 150 MG, UNK
     Route: 048
     Dates: start: 20111012

REACTIONS (2)
  - BLISTER [None]
  - WHEEZING [None]
